FAERS Safety Report 17687796 (Version 1)
Quarter: 2020Q2

REPORT INFORMATION
  Report Type: Spontaneous
  Country: US (occurrence: US)
  Receive Date: 20200421
  Receipt Date: 20200421
  Transmission Date: 20200714
  Serious: No
  Sender: FDA-Public Use
  Company Number: US-SA-2018SA170083

PATIENT
  Age: 60 Year
  Sex: Female

DRUGS (1)
  1. PRALUENT [Suspect]
     Active Substance: ALIROCUMAB
     Indication: BLOOD TRIGLYCERIDES ABNORMAL
     Dosage: 150 MG, QOW
     Route: 058
     Dates: start: 20180618

REACTIONS (2)
  - Device issue [Unknown]
  - Incorrect dose administered [Unknown]
